FAERS Safety Report 7218422-2 (Version None)
Quarter: 2011Q1

REPORT INFORMATION
  Report Type: 
  Country: None (occurrence: None)
  Receive Date: 20110110
  Receipt Date: 20101220
  Transmission Date: 20110831
  Serious: No
  Sender: FDA-Public Use
  Company Number: JP-PFIZER INC-2010159609

PATIENT
  Age: 66 Year
  Sex: Male

DRUGS (5)
  1. OLMETEC [Suspect]
     Indication: ESSENTIAL HYPERTENSION
     Dosage: 10 MG, 1X/DAY
     Route: 048
     Dates: start: 20100418
  2. OMEPRAZOLE [Suspect]
     Dosage: 10 MG, UNK
     Route: 065
  3. LIPITOR [Suspect]
     Dosage: 5 MG, UNK
     Route: 065
  4. AMLODIPINE BESILATE [Suspect]
     Dosage: UNK
     Route: 065
  5. AMARYL [Suspect]
     Dosage: 1 MG, UNK
     Route: 065

REACTIONS (1)
  - RENAL FAILURE CHRONIC [None]
